FAERS Safety Report 13928119 (Version 1)
Quarter: 2017Q3

REPORT INFORMATION
  Report Type: Spontaneous
  Country: ES (occurrence: ES)
  Receive Date: 20170901
  Receipt Date: 20170901
  Transmission Date: 20171127
  Serious: Yes (Death, Hospitalization, Other)
  Sender: FDA-Public Use
  Company Number: ES-ALEMBIC PHARMACUETICALS LIMITED-2017SCAL000701

PATIENT

DRUGS (2)
  1. LAMOTRIGINE. [Suspect]
     Active Substance: LAMOTRIGINE
     Indication: SEIZURE
     Dosage: 25 MG IN THE MORNING AND 50 MG AT NIGHT
     Route: 065
  2. IBUPROFEN. [Concomitant]
     Active Substance: IBUPROFEN
     Indication: INJURY
     Dosage: 600 MG, EVERY 8 HOURS
     Route: 065

REACTIONS (5)
  - Septic shock [Fatal]
  - Cardio-respiratory arrest [Fatal]
  - Rash generalised [Unknown]
  - Toxic epidermal necrolysis [Fatal]
  - Pyrexia [Unknown]
